FAERS Safety Report 17570685 (Version 3)
Quarter: 2020Q3

REPORT INFORMATION
  Report Type: Spontaneous
  Country: CA (occurrence: CA)
  Receive Date: 20200323
  Receipt Date: 20200908
  Transmission Date: 20201102
  Serious: No
  Sender: FDA-Public Use
  Company Number: CA-ROCHE-2559985

PATIENT
  Age: 30 Year
  Sex: Female

DRUGS (2)
  1. OCREVUS [Suspect]
     Active Substance: OCRELIZUMAB
     Indication: MULTIPLE SCLEROSIS
     Dosage: 300 MG IV DAYS 1?15 600 MG IV EVERY 6 MONTHS
     Route: 042
     Dates: start: 20200224
  2. OCREVUS [Suspect]
     Active Substance: OCRELIZUMAB
     Indication: RELAPSING-REMITTING MULTIPLE SCLEROSIS

REACTIONS (13)
  - Oral herpes [Not Recovered/Not Resolved]
  - Gastroenteritis viral [Recovered/Resolved]
  - Pain in extremity [Not Recovered/Not Resolved]
  - Gastroenteritis [Not Recovered/Not Resolved]
  - Infusion related reaction [Recovered/Resolved]
  - Dyspnoea [Not Recovered/Not Resolved]
  - Tonsillar hypertrophy [Recovering/Resolving]
  - Abscess oral [Recovering/Resolving]
  - Dyspnoea [Not Recovered/Not Resolved]
  - Oral fungal infection [Unknown]
  - Oral herpes [Recovered/Resolved]
  - Abscess of salivary gland [Recovered/Resolved]
  - Infusion related reaction [Recovered/Resolved]

NARRATIVE: CASE EVENT DATE: 20200224
